FAERS Safety Report 18407112 (Version 2)
Quarter: 2020Q4

REPORT INFORMATION
  Report Type: Spontaneous
  Country: NL (occurrence: NL)
  Receive Date: 20201021
  Receipt Date: 20201203
  Transmission Date: 20210114
  Serious: Yes (Hospitalization)
  Sender: FDA-Public Use
  Company Number: NL-UCBSA-2020040975

PATIENT
  Age: 73 Year
  Sex: Male
  Weight: 61 kg

DRUGS (11)
  1. DUODOPA [Suspect]
     Active Substance: CARBIDOPA\LEVODOPA
     Dosage: MD 3.0 ML; 2.8 ML/H; ED 2.5 ML, REMAINS AT 16 HOURS
  2. SYMMETREL [Concomitant]
     Active Substance: AMANTADINE HYDROCHLORIDE
     Indication: PARKINSON^S DISEASE
     Dosage: UNK
  3. MOVICOLON [Concomitant]
     Active Substance: POLYETHYLENE GLYCOL 3350\POTASSIUM CHLORIDE\SODIUM BICARBONATE\SODIUM CHLORIDE
     Indication: ABNORMAL FAECES
     Dosage: UNK
  4. DUODOPA [Suspect]
     Active Substance: CARBIDOPA\LEVODOPA
     Dosage: MD: 4.5, CD: 2.5, ED: 1.0,
  5. MADOPAR HBS [Concomitant]
     Active Substance: BENSERAZIDE HYDROCHLORIDE\LEVODOPA
     Indication: PARKINSON^S DISEASE
     Dosage: UNK
  6. NEUPRO [Concomitant]
     Active Substance: ROTIGOTINE
     Indication: PRODUCT USED FOR UNKNOWN INDICATION
     Dosage: PLASTERS
     Dates: start: 20200929
  7. DUODOPA [Suspect]
     Active Substance: CARBIDOPA\LEVODOPA
     Indication: PARKINSON^S DISEASE
     Dosage: CD INCREASED 0.2 ML TO 2.7 ML.  MD DECREASED 1.0 TO 3.5 ML.
  8. DUODOPA [Suspect]
     Active Substance: CARBIDOPA\LEVODOPA
     Dosage: MD: 3.5, CD: 2.6, ED: 2.5; 16 HOUR ADMINISTRATION
  9. DUODOPA [Suspect]
     Active Substance: CARBIDOPA\LEVODOPA
     Dosage: MD: 3.0, CD: 2.6, ED: 2.5; 16 HOUR ADMINISTRATION MORNING DOSE DECREASED
  10. MADOPAR DISPERSIBL [Concomitant]
     Active Substance: BENSERAZIDE HYDROCHLORIDE\LEVODOPA
     Indication: PRODUCT USED FOR UNKNOWN INDICATION
  11. NEUPRO [Suspect]
     Active Substance: ROTIGOTINE
     Indication: PRODUCT USED FOR UNKNOWN INDICATION
     Dosage: UNK
     Dates: start: 20201110

REACTIONS (32)
  - Impaired quality of life [Unknown]
  - Delusion [Unknown]
  - Hallucination, visual [Recovering/Resolving]
  - Stoma site erythema [Recovered/Resolved]
  - Device difficult to use [Unknown]
  - Stoma site reaction [Recovered/Resolved]
  - On and off phenomenon [Not Recovered/Not Resolved]
  - Stoma site haemorrhage [Not Recovered/Not Resolved]
  - Weight decreased [Not Recovered/Not Resolved]
  - Gait disturbance [Recovering/Resolving]
  - Hypoaesthesia [Not Recovered/Not Resolved]
  - Limb discomfort [Not Recovered/Not Resolved]
  - Muscle spasms [Not Recovered/Not Resolved]
  - Musculoskeletal discomfort [Recovering/Resolving]
  - Medical device site dryness [Unknown]
  - Stoma site extravasation [Not Recovered/Not Resolved]
  - Tremor [Not Recovered/Not Resolved]
  - Dyskinesia [Recovered/Resolved]
  - Abnormal dreams [Not Recovered/Not Resolved]
  - Speech disorder [Not Recovered/Not Resolved]
  - Memory impairment [Not Recovered/Not Resolved]
  - Muscle rigidity [Not Recovered/Not Resolved]
  - Inflammation [Recovered/Resolved]
  - Motor dysfunction [Not Recovered/Not Resolved]
  - Feeling abnormal [Not Recovered/Not Resolved]
  - Dystonia [Not Recovered/Not Resolved]
  - Nervousness [Not Recovered/Not Resolved]
  - Medical device site hypertrophy [Recovered/Resolved]
  - Stoma site inflammation [Recovered/Resolved]
  - Amnesia [Not Recovered/Not Resolved]
  - Middle insomnia [Recovered/Resolved]
  - Device issue [Unknown]

NARRATIVE: CASE EVENT DATE: 2018
